FAERS Safety Report 16437098 (Version 2)
Quarter: 2019Q3

REPORT INFORMATION
  Report Type: Spontaneous
  Country: SK (occurrence: SK)
  Receive Date: 20190615
  Receipt Date: 20190702
  Transmission Date: 20191004
  Serious: Yes (Hospitalization)
  Sender: FDA-Public Use
  Company Number: PHHY2019SK137487

PATIENT
  Age: 66 Year
  Sex: Female

DRUGS (1)
  1. AMOXICILLIN + CLAVULANATE POTASSIUM [Suspect]
     Active Substance: AMOXICILLIN\CLAVULANATE POTASSIUM
     Indication: SINONASAL PAPILLOMA
     Route: 065

REACTIONS (6)
  - Memory impairment [Recovered/Resolved]
  - Disorientation [Recovered/Resolved]
  - Brain oedema [Recovered/Resolved]
  - Amnesia [Recovered/Resolved]
  - Product use in unapproved indication [Unknown]
  - Brain abscess [Recovered/Resolved]
